FAERS Safety Report 10044065 (Version 2)
Quarter: 2014Q1

REPORT INFORMATION
  Report Type: Spontaneous
  Country: US (occurrence: US)
  Receive Date: 20140328
  Receipt Date: 20140328
  Transmission Date: 20141002
  Serious: No
  Sender: FDA-Public Use
  Company Number: US-MYLANLABS-2013S1024680

PATIENT
  Sex: Female
  Weight: 72.58 kg

DRUGS (6)
  1. EMSAM (SELEGILINE TRANSDERMAL SYSTEM) [Suspect]
     Indication: MAJOR DEPRESSION
     Route: 062
     Dates: start: 2011
  2. EMSAM (SELEGILINE TRANSDERMAL SYSTEM) [Suspect]
     Indication: MAJOR DEPRESSION
     Route: 062
  3. ABILIFY [Concomitant]
     Indication: DEPRESSION
     Route: 048
  4. CRESTOR [Concomitant]
     Indication: HYPERLIPIDAEMIA
     Route: 048
  5. LOVAZA [Concomitant]
     Route: 048
  6. VALIUM [Concomitant]
     Route: 048

REACTIONS (6)
  - Hypoaesthesia [Not Recovered/Not Resolved]
  - Hyperreflexia [Not Recovered/Not Resolved]
  - Insomnia [Recovered/Resolved]
  - Oral pain [Not Recovered/Not Resolved]
  - Agitation [Recovered/Resolved]
  - Drug administration error [Not Recovered/Not Resolved]
